FAERS Safety Report 25901435 (Version 1)
Quarter: 2025Q4

REPORT INFORMATION
  Report Type: Spontaneous
  Country: US (occurrence: US)
  Receive Date: 20251009
  Receipt Date: 20251009
  Transmission Date: 20260118
  Serious: Yes (Hospitalization, Other)
  Sender: NOVO NORDISK
  Company Number: US-NOVOPROD-1534360

PATIENT
  Age: 67 Year
  Sex: Male

DRUGS (1)
  1. NOVOLOG [Suspect]
     Active Substance: INSULIN ASPART
     Indication: Type 2 diabetes mellitus
     Dosage: UNK, SLIDING SCALE
     Dates: end: 2022

REACTIONS (6)
  - Sciatica [Unknown]
  - Road traffic accident [Unknown]
  - Spinal operation [Unknown]
  - Road traffic accident [Unknown]
  - Road traffic accident [Unknown]
  - Spinal cord herniation [Unknown]

NARRATIVE: CASE EVENT DATE: 20040101
